FAERS Safety Report 12835069 (Version 2)
Quarter: 2016Q4

REPORT INFORMATION
  Report Type: Spontaneous
  Country: US (occurrence: US)
  Receive Date: 20161010
  Receipt Date: 20161018
  Transmission Date: 20170207
  Serious: Yes (Other)
  Sender: FDA-Public Use
  Company Number: US-ASTRAZENECA-2016SF05530

PATIENT
  Sex: Male

DRUGS (1)
  1. PRILOSEC OTC [Suspect]
     Active Substance: OMEPRAZOLE MAGNESIUM
     Dosage: 1 TABLET EVERY 2 DAY
     Route: 048
     Dates: start: 2006

REACTIONS (6)
  - Hyperchlorhydria [Unknown]
  - Gastric polyps [Unknown]
  - Incorrect drug administration duration [Unknown]
  - Drug dependence [Unknown]
  - Drug dose omission [Unknown]
  - Condition aggravated [Unknown]
